FAERS Safety Report 8582804-7 (Version None)
Quarter: 2012Q3

REPORT INFORMATION
  Report Type: 
  Country: None (occurrence: None)
  Receive Date: 20120809
  Receipt Date: 20120803
  Transmission Date: 20120928
  Serious: Yes (Other)
  Sender: FDA-Public Use
  Company Number: AU-ROCHE-1099242

PATIENT
  Sex: Male
  Weight: 115 kg

DRUGS (2)
  1. AVASTIN [Suspect]
  2. AVASTIN [Suspect]
     Indication: GLIOMA
     Dates: end: 20120312

REACTIONS (1)
  - DISEASE PROGRESSION [None]
